FAERS Safety Report 11511453 (Version 1)
Quarter: 2015Q3

REPORT INFORMATION
  Report Type: Spontaneous
  Country: US (occurrence: US)
  Receive Date: 20150915
  Receipt Date: 20150915
  Transmission Date: 20151125
  Serious: No
  Sender: FDA-Public Use
  Company Number: US-BAXTER-2015BAX048926

PATIENT

DRUGS (1)
  1. 0.9% SODIUM CHLORIDE INJECTION [Suspect]
     Active Substance: SODIUM CHLORIDE
     Indication: PERITONEAL DIALYSIS
     Route: 065
     Dates: start: 20150824

REACTIONS (4)
  - Off label use [Unknown]
  - No adverse event [Recovered/Resolved]
  - Underdose [Unknown]
  - Device infusion issue [Unknown]

NARRATIVE: CASE EVENT DATE: 20150824
